FAERS Safety Report 15877651 (Version 1)
Quarter: 2019Q1

REPORT INFORMATION
  Report Type: Spontaneous
  Country: US (occurrence: US)
  Receive Date: 20190128
  Receipt Date: 20190128
  Transmission Date: 20190417
  Serious: No
  Sender: FDA-Public Use
  Company Number: US-AUROBINDO-AUR-APL-2018-063972

PATIENT
  Age: 15 Year
  Sex: Female

DRUGS (1)
  1. TRI-VYLIBRA [Suspect]
     Active Substance: ETHINYL ESTRADIOL\NORGESTIMATE
     Indication: NON-CONSUMMATION
     Route: 065

REACTIONS (1)
  - Product dose omission [Unknown]
